FAERS Safety Report 9929944 (Version 2)
Quarter: 2014Q1

REPORT INFORMATION
  Report Type: Spontaneous
  Country: DE (occurrence: DE)
  Receive Date: 20140227
  Receipt Date: 20140227
  Transmission Date: 20141002
  Serious: Yes (Other)
  Sender: FDA-Public Use
  Company Number: PHHY2011DE16143

PATIENT
  Age: 40 Year
  Sex: Female

DRUGS (1)
  1. CANDESARTAN CILEXETIL [Suspect]
     Indication: ESSENTIAL HYPERTENSION
     Dosage: UNK

REACTIONS (3)
  - Oligohydramnios [Recovering/Resolving]
  - Premature labour [Unknown]
  - Maternal exposure during pregnancy [Unknown]
